FAERS Safety Report 15627396 (Version 1)
Quarter: 2018Q4

REPORT INFORMATION
  Report Type: Spontaneous
  Country: BR (occurrence: BR)
  Receive Date: 20181116
  Receipt Date: 20181116
  Transmission Date: 20190205
  Serious: Yes (Other)
  Sender: FDA-Public Use
  Company Number: PHHY2018BR152035

PATIENT
  Age: 33 Year
  Sex: Female

DRUGS (1)
  1. BROMOCRIPTINE [Suspect]
     Active Substance: BROMOCRIPTINE
     Indication: BREAST ENLARGEMENT
     Route: 065

REACTIONS (7)
  - Skin necrosis [Recovering/Resolving]
  - Drug ineffective for unapproved indication [Unknown]
  - Breast pain [Recovering/Resolving]
  - Breast enlargement [Recovering/Resolving]
  - Maternal exposure during pregnancy [Unknown]
  - Ulcer [Recovering/Resolving]
  - Condition aggravated [Recovering/Resolving]
